FAERS Safety Report 11214525 (Version 1)
Quarter: 2015Q2

REPORT INFORMATION
  Report Type: Spontaneous
  Country: US (occurrence: None)
  Receive Date: 20150622
  Receipt Date: 20150622
  Transmission Date: 20150821
  Serious: Yes (Hospitalization)
  Sender: FDA-Public Use
  Company Number: None

PATIENT
  Age: 61 Year
  Sex: Female

DRUGS (1)
  1. AFINITOR [Suspect]
     Active Substance: EVEROLIMUS
     Indication: NEOPLASM MALIGNANT
     Dosage: 1 TABLET QD PO
     Route: 048
     Dates: start: 20150427

REACTIONS (3)
  - Femur fracture [None]
  - Fall [None]
  - Stomatitis [None]

NARRATIVE: CASE EVENT DATE: 20150611
